FAERS Safety Report 8419539-7 (Version None)
Quarter: 2012Q2

REPORT INFORMATION
  Report Type: 
  Country: None (occurrence: None)
  Receive Date: 20120607
  Receipt Date: 20120323
  Transmission Date: 20120825
  Serious: No
  Sender: FDA-Public Use
  Company Number: US-BRISTOL-MYERS SQUIBB COMPANY-16413437

PATIENT
  Age: 70 Year
  Sex: Male

DRUGS (7)
  1. OMEPRAZOLE [Concomitant]
  2. VYTORIN [Concomitant]
  3. ALTACE [Concomitant]
  4. NORTRIPTYLINE HCL [Concomitant]
  5. SUSTIVA [Suspect]
     Dates: end: 20120214
  6. EPZICOM [Concomitant]
  7. COREG [Concomitant]

REACTIONS (4)
  - CONFUSIONAL STATE [None]
  - ABNORMAL DREAMS [None]
  - DIZZINESS [None]
  - MIGRAINE [None]
